FAERS Safety Report 8821043 (Version 2)
Quarter: 2014Q1

REPORT INFORMATION
  Report Type: Spontaneous
  Country: US (occurrence: US)
  Receive Date: 20121002
  Receipt Date: 20140124
  Transmission Date: 20141002
  Serious: Yes (Other)
  Sender: FDA-Public Use
  Company Number: US-ASTRAZENECA-2012SE73376

PATIENT
  Age: 54 Year
  Sex: Female
  Weight: 79.4 kg

DRUGS (16)
  1. PULMICORT RESPULES [Suspect]
     Route: 055
  2. PULMICORT RESPULES [Suspect]
     Route: 055
  3. NEXIUM [Suspect]
     Indication: GASTROOESOPHAGEAL REFLUX DISEASE
     Route: 048
     Dates: start: 2008, end: 201311
  4. PRILOSEC OTC [Suspect]
     Indication: GASTROOESOPHAGEAL REFLUX DISEASE
     Route: 048
     Dates: start: 201311
  5. ADVAIR [Concomitant]
     Indication: CHRONIC OBSTRUCTIVE PULMONARY DISEASE
     Dosage: 250/50 BID
  6. ADVAIR [Concomitant]
     Indication: ASTHMA
     Dosage: 250/50 BID
  7. NOVOLOG [Concomitant]
     Indication: DIABETES MELLITUS
     Dosage: 70/30 FLEXPEN BID
     Route: 058
     Dates: start: 2007
  8. SPIRIVA [Concomitant]
     Indication: CHRONIC OBSTRUCTIVE PULMONARY DISEASE
     Route: 055
  9. SPIRIVA [Concomitant]
     Indication: ASTHMA
     Route: 055
  10. HYDROCHLOROTHIAZIDE [Concomitant]
     Indication: BLOOD PRESSURE ABNORMAL
     Route: 048
     Dates: start: 2009
  11. FLEXERIL [Concomitant]
     Indication: MUSCLE RELAXANT THERAPY
     Route: 048
  12. ACTOS [Concomitant]
     Indication: DIABETES MELLITUS
     Route: 048
  13. SINGULAIR [Concomitant]
     Indication: ASTHMA
     Route: 055
  14. SINGULAIR [Concomitant]
     Indication: CHRONIC OBSTRUCTIVE PULMONARY DISEASE
     Route: 055
  15. VENTOLIN [Concomitant]
     Indication: INHALATION THERAPY
     Dosage: PRN
  16. NAPROXEN [Concomitant]
     Indication: ARTHRITIS
     Route: 048

REACTIONS (10)
  - Renal mass [Unknown]
  - Respiratory disorder [Unknown]
  - Flatulence [Not Recovered/Not Resolved]
  - Nausea [Not Recovered/Not Resolved]
  - Malaise [Not Recovered/Not Resolved]
  - Osteoarthritis [Not Recovered/Not Resolved]
  - Hypersensitivity [Unknown]
  - Off label use [Unknown]
  - Drug dose omission [Not Recovered/Not Resolved]
  - Drug ineffective [Not Recovered/Not Resolved]
